FAERS Safety Report 4628214-6 (Version None)
Quarter: 2005Q2

REPORT INFORMATION
  Report Type: 
  Country: None (occurrence: None)
  Receive Date: 20050404
  Receipt Date: 20050322
  Transmission Date: 20051028
  Serious: Yes (Other)
  Sender: FDA-Public Use
  Company Number: 2005045467

PATIENT
  Age: 78 Year
  Sex: Male
  Weight: 90 kg

DRUGS (6)
  1. VIAGRA [Suspect]
     Indication: ERECTILE DYSFUNCTION
     Dosage: AS NECESSARY, ORAL; 5-6 YEARS
     Route: 048
  2. ASPIRIN [Concomitant]
  3. LISINOPRIL [Concomitant]
  4. CALCIUM DOBESILATE (CALCIUM DOBESILATE) [Concomitant]
  5. GINKGO BILOBA (GINKGO BILOBA) [Concomitant]
  6. LERCANIDIPINE [Concomitant]

REACTIONS (1)
  - MACULOPATHY [None]
